FAERS Safety Report 22000164 (Version 1)
Quarter: 2023Q1

REPORT INFORMATION
  Report Type: Spontaneous
  Country: CA (occurrence: CA)
  Receive Date: 20230216
  Receipt Date: 20230216
  Transmission Date: 20230417
  Serious: Yes (Death)
  Sender: FDA-Public Use
  Company Number: CA-PFIZER INC-PV202300030180

PATIENT
  Age: 54 Year
  Sex: Female

DRUGS (1)
  1. SUTENT [Suspect]
     Active Substance: SUNITINIB MALATE
     Dosage: UNK
     Dates: start: 20220214

REACTIONS (1)
  - Death [Fatal]

NARRATIVE: CASE EVENT DATE: 20220101
